FAERS Safety Report 4285494-7 (Version None)
Quarter: 2004Q1

REPORT INFORMATION
  Report Type: 
  Country: None (occurrence: None)
  Receive Date: 20040202
  Receipt Date: 20040116
  Transmission Date: 20041129
  Serious: Yes (Hospitalization)
  Sender: FDA-Public Use
  Company Number: 2004AP00328

PATIENT
  Age: 62 Year
  Sex: Female

DRUGS (15)
  1. IRESSA [Suspect]
     Indication: LUNG ADENOCARCINOMA
     Dosage: 250 MG DAILY PO
     Route: 048
     Dates: start: 20030902, end: 20031208
  2. MEIACT [Suspect]
     Indication: URINARY TRACT INFECTION
     Dosage: 300 MG DAILY PO
     Route: 047
     Dates: start: 20031126, end: 20031208
  3. PREDONINE [Concomitant]
  4. LEXONIN [Concomitant]
  5. GASTER [Concomitant]
  6. MARZULENE [Concomitant]
  7. MUCODYNE [Concomitant]
  8. DEPAKENE [Concomitant]
  9. PURSENNID [Concomitant]
  10. RHYTHMY [Concomitant]
  11. NEUROVITAN [Concomitant]
  12. MAGNESIUM  OXIDE [Concomitant]
  13. CISPLATIN [Concomitant]
  14. VINORELBINE TARTRATE [Concomitant]
  15. RADIOTHERAPY [Concomitant]

REACTIONS (4)
  - CYSTITIS HAEMORRHAGIC [None]
  - HAEMATURIA [None]
  - RENAL IMPAIRMENT [None]
  - URINARY TRACT INFECTION [None]
